FAERS Safety Report 8177098-0 (Version None)
Quarter: 2012Q1

REPORT INFORMATION
  Report Type: 
  Country: None (occurrence: None)
  Receive Date: 20120124
  Receipt Date: 20111206
  Transmission Date: 20120608
  Serious: No
  Sender: FDA-Public Use
  Company Number: US-007071

PATIENT
  Age: 73 Year
  Sex: Male
  Weight: 72.5755 kg

DRUGS (3)
  1. BUPROPION HCL [Concomitant]
  2. FIRMAGON [Suspect]
     Indication: METASTASES TO PROSTATE
     Dosage: (240 MG 1X SUBCUTANEOUS)
     Route: 058
     Dates: start: 20111202, end: 20111202
  3. METRONIDAZOLE [Concomitant]

REACTIONS (4)
  - OXYGEN SATURATION DECREASED [None]
  - DISCOMFORT [None]
  - ABDOMINAL PAIN [None]
  - DYSPNOEA [None]
